FAERS Safety Report 11775196 (Version 1)
Quarter: 2015Q4

REPORT INFORMATION
  Report Type: Spontaneous
  Country: JP (occurrence: JP)
  Receive Date: 20151124
  Receipt Date: 20151124
  Transmission Date: 20160304
  Serious: Yes (Other)
  Sender: FDA-Public Use
  Company Number: JP-MYLANLABS-2015M1041836

PATIENT

DRUGS (5)
  1. IMMUNE GLOBULIN [Suspect]
     Active Substance: HUMAN IMMUNOGLOBULIN G
     Indication: AUTOIMMUNE THYROIDITIS
     Dosage: 20 G OVER FIVE DAYS
     Route: 042
  2. IMMUNE GLOBULIN [Suspect]
     Active Substance: HUMAN IMMUNOGLOBULIN G
     Dosage: 20 G OVER FIVE DAYS
     Route: 042
  3. ACICLOVIR [Concomitant]
     Active Substance: ACYCLOVIR
     Indication: PRODUCT USED FOR UNKNOWN INDICATION
     Dosage: 1,500 MG/DAY
     Route: 065
  4. METHYLPREDNISOLONE. [Suspect]
     Active Substance: METHYLPREDNISOLONE
     Indication: HASHIMOTO^S ENCEPHALOPATHY
     Dosage: 1 GM, 3 DAY INFUSION
     Route: 050
  5. VALPROATE [Suspect]
     Active Substance: VALPROATE SODIUM
     Indication: HASHIMOTO^S ENCEPHALOPATHY
     Route: 065

REACTIONS (2)
  - Thrombocytopenia [Unknown]
  - Drug ineffective [Unknown]
